FAERS Safety Report 5193608-X (Version None)
Quarter: 2006Q4

REPORT INFORMATION
  Report Type: 
  Country: None (occurrence: None)
  Receive Date: 20061228
  Receipt Date: 20061013
  Transmission Date: 20070319
  Serious: No
  Sender: FDA-Public Use
  Company Number: US-GLAXOSMITHKLINE-A0623579A

PATIENT
  Sex: Male

DRUGS (2)
  1. FLONASE [Suspect]
     Indication: MULTIPLE ALLERGIES
     Route: 045
  2. ASTELIN [Concomitant]
     Indication: MULTIPLE ALLERGIES
     Route: 065

REACTIONS (1)
  - ERYTHEMA [None]
